FAERS Safety Report 4649738-1 (Version None)
Quarter: 2005Q2

REPORT INFORMATION
  Report Type: 
  Country: None (occurrence: None)
  Receive Date: 20050428
  Receipt Date: 20050428
  Transmission Date: 20051028
  Serious: Yes (Life-Threatening, Hospitalization)
  Sender: FDA-Public Use
  Company Number: None

PATIENT
  Age: 43 Year
  Sex: Male
  Weight: 108.8633 kg

DRUGS (5)
  1. HUMIRA [Suspect]
     Indication: RHEUMATOID ARTHRITIS
     Dosage: 40 MG   Q 2 WEEKS   SUBCUTANEO
     Route: 058
     Dates: start: 20040701, end: 20050331
  2. METHOTREXATE [Suspect]
     Indication: RHEUMATOID ARTHRITIS
     Dates: start: 19990101, end: 20040331
  3. PROZAC [Concomitant]
  4. LOTREL [Concomitant]
  5. ALLEGRA [Concomitant]

REACTIONS (3)
  - EAR PAIN [None]
  - HISTOPLASMOSIS [None]
  - RESPIRATORY FAILURE [None]
